FAERS Safety Report 9018765 (Version 1)
Quarter: 2013Q1

REPORT INFORMATION
  Report Type: Spontaneous
  Country: GB (occurrence: GB)
  Receive Date: 20130118
  Receipt Date: 20130118
  Transmission Date: 20140127
  Serious: Yes (Hospitalization)
  Sender: FDA-Public Use
  Company Number: GB-SANOFI-AVENTIS-2013SA001940

PATIENT
  Age: 63 Year
  Sex: Female

DRUGS (7)
  1. TEICOPLANIN [Suspect]
     Indication: ENDOCARDITIS
     Route: 065
  2. PIPERACILLIN/TAZOBACTAM [Suspect]
     Indication: ENDOCARDITIS
     Route: 042
  3. RIFAMPICIN [Suspect]
     Indication: ENDOCARDITIS
     Route: 048
  4. GENTAMICIN [Concomitant]
  5. CIPROFLOXACIN [Concomitant]
  6. FLUCONAZOLE [Concomitant]
  7. DAPTOMYCIN [Concomitant]

REACTIONS (3)
  - Neutropenic sepsis [Recovered/Resolved]
  - Chills [Recovered/Resolved]
  - Pyrexia [Recovered/Resolved]
